FAERS Safety Report 24794142 (Version 1)
Quarter: 2024Q4

REPORT INFORMATION
  Report Type: Report from Study
  Country: US (occurrence: US)
  Receive Date: 20241231
  Receipt Date: 20241231
  Transmission Date: 20250115
  Serious: Yes (Death)
  Sender: BAYER HEALTHCARE PHARMACEUTICALS INC.
  Company Number: US-BAYER-2024A183916

PATIENT
  Sex: Female
  Weight: 102.04 kg

DRUGS (18)
  1. ADEMPAS [Suspect]
     Active Substance: RIOCIGUAT
     Indication: Pulmonary arterial hypertension
     Dosage: UNK
     Dates: start: 20240910
  2. ADEMPAS [Suspect]
     Active Substance: RIOCIGUAT
     Indication: Pulmonary arterial hypertension
     Dosage: 1 MG, TID
     Route: 048
  3. ATORVASTATIN CALCIUM [Concomitant]
     Active Substance: ATORVASTATIN CALCIUM
  4. LEVEMIR [Concomitant]
     Active Substance: INSULIN DETEMIR
  5. LEVOTHYROXINE SODIUM [Concomitant]
     Active Substance: LEVOTHYROXINE SODIUM
  6. VITAMINS [Concomitant]
     Active Substance: VITAMINS
  7. CRANBERRY [Concomitant]
     Active Substance: CRANBERRY
  8. MEGESTROL ACETATE [Concomitant]
     Active Substance: MEGESTROL ACETATE
  9. OXYCODONE HYDROCHLORIDE [Concomitant]
     Active Substance: OXYCODONE HYDROCHLORIDE
  10. POTASSIUM CHLORIDE [Concomitant]
     Active Substance: POTASSIUM CHLORIDE
  11. SERTRALINE HYDROCHLORIDE [Concomitant]
     Active Substance: SERTRALINE HYDROCHLORIDE
  12. CINNAMON [Concomitant]
     Active Substance: CINNAMON
  13. BUMETANIDE [Concomitant]
     Active Substance: BUMETANIDE
  14. NOVOLOG [Concomitant]
     Active Substance: INSULIN ASPART
  15. LATANOPROST [Concomitant]
     Active Substance: LATANOPROST
  16. OXYGEN [Concomitant]
     Active Substance: OXYGEN
  17. BRIMONIDINE TARTRATE [Concomitant]
     Active Substance: BRIMONIDINE TARTRATE
  18. PLAVIX [Concomitant]
     Active Substance: CLOPIDOGREL BISULFATE

REACTIONS (1)
  - Death [Fatal]
